FAERS Safety Report 25835236 (Version 1)
Quarter: 2025Q3

REPORT INFORMATION
  Report Type: Spontaneous
  Country: EU (occurrence: EU)
  Receive Date: 20250923
  Receipt Date: 20250923
  Transmission Date: 20251020
  Serious: Yes (Other)
  Sender: RANBAXY
  Company Number: EU-AFSSAPS-AN2025000730

PATIENT
  Age: 16 Year
  Sex: Male
  Weight: 86 kg

DRUGS (2)
  1. RISPERIDONE [Suspect]
     Active Substance: RISPERIDONE
     Indication: Mental disorder
     Dosage: 7 MILLIGRAM, DAILY
     Route: 048
     Dates: start: 20250109
  2. Temesta [Concomitant]
     Indication: Product used for unknown indication
     Route: 048
     Dates: start: 20250109

REACTIONS (5)
  - Hyperprolactinaemia [Not Recovered/Not Resolved]
  - Sexual dysfunction [Not Recovered/Not Resolved]
  - Gynaecomastia [Not Recovered/Not Resolved]
  - Dry mouth [Not Recovered/Not Resolved]
  - Somnolence [Not Recovered/Not Resolved]

NARRATIVE: CASE EVENT DATE: 20250526
